FAERS Safety Report 5328329-3 (Version None)
Quarter: 2007Q2

REPORT INFORMATION
  Report Type: 
  Country: None (occurrence: None)
  Receive Date: 20070518
  Receipt Date: 20070508
  Transmission Date: 20071010
  Serious: Yes (Other)
  Sender: FDA-Public Use
  Company Number: DE-JNJFOC-20070502150

PATIENT
  Age: 7 Decade
  Sex: Female

DRUGS (3)
  1. CAELYX [Suspect]
     Dosage: 3RD INFUSION
     Route: 042
  2. CAELYX [Suspect]
     Dosage: 2ND INFUSION
     Route: 042
  3. CAELYX [Suspect]
     Indication: OVARIAN CANCER
     Dosage: 1ST INFUSION
     Route: 042

REACTIONS (2)
  - HEPATIC ENZYME INCREASED [None]
  - ILEUS [None]
